FAERS Safety Report 9474251 (Version 4)
Quarter: 2014Q1

REPORT INFORMATION
  Report Type: Spontaneous
  Country: TR (occurrence: TR)
  Receive Date: 20130823
  Receipt Date: 20140211
  Transmission Date: 20141002
  Serious: Yes (Other)
  Sender: FDA-Public Use
  Company Number: TR-ASTRAZENECA-2013SE51861

PATIENT
  Age: 36 Year
  Sex: Male

DRUGS (8)
  1. NEXIUM [Suspect]
     Indication: ABDOMINAL PAIN UPPER
     Dosage: 5 TO 10 TABLETS
     Route: 048
     Dates: start: 201301
  2. NEXIUM [Suspect]
     Indication: GASTROINTESTINAL DISORDER
     Dosage: 5 TO 10 TABLETS
     Route: 048
     Dates: start: 201301
  3. NEXIUM [Suspect]
     Indication: ABDOMINAL PAIN UPPER
     Route: 048
     Dates: start: 201305
  4. NEXIUM [Suspect]
     Indication: GASTROINTESTINAL DISORDER
     Route: 048
     Dates: start: 201305
  5. NEXIUM [Suspect]
     Indication: ABDOMINAL PAIN UPPER
     Route: 048
  6. NEXIUM [Suspect]
     Indication: GASTROINTESTINAL DISORDER
     Route: 048
  7. MACROL [Concomitant]
     Indication: COUGH
     Route: 065
     Dates: start: 201301, end: 2013
  8. TAVANIC [Concomitant]
     Indication: COUGH
     Route: 065
     Dates: start: 201301, end: 2013

REACTIONS (10)
  - Chromaturia [Recovered/Resolved]
  - Faeces discoloured [Recovered/Resolved]
  - Scleral discolouration [Recovering/Resolving]
  - Blood bilirubin increased [Recovered/Resolved]
  - Embolism venous [Recovering/Resolving]
  - Bile duct obstruction [Recovering/Resolving]
  - Neoplasm malignant [Recovered/Resolved]
  - Hepatitis toxic [Unknown]
  - Aspartate aminotransferase increased [Recovered/Resolved]
  - Alanine aminotransferase increased [Recovered/Resolved]
